FAERS Safety Report 6241532-3 (Version None)
Quarter: 2009Q2

REPORT INFORMATION
  Report Type: 
  Country: None (occurrence: None)
  Receive Date: 20090623
  Receipt Date: 20040304
  Transmission Date: 20091009
  Serious: Yes (Death, Life-Threatening, Hospitalization)
  Sender: FDA-Public Use
  Company Number: AT-ROCHE-355575

PATIENT
  Sex: Male
  Weight: 89 kg

DRUGS (18)
  1. DACLIZUMAB [Suspect]
     Dosage: BASELINE VISIT
     Route: 042
     Dates: start: 20031231
  2. MYCOPHENOLATE MOFETIL [Suspect]
     Route: 048
     Dates: start: 20031231, end: 20040102
  3. TACROLIMUS [Suspect]
     Route: 048
     Dates: start: 20031231, end: 20040101
  4. URBASON [Suspect]
     Route: 042
     Dates: start: 20040101, end: 20040101
  5. PANTOPRAZOLE SODIUM [Concomitant]
     Route: 042
     Dates: start: 20040101, end: 20040221
  6. LEXOTANIL [Concomitant]
     Route: 048
     Dates: start: 20040101, end: 20040101
  7. METOPROLOL TARTRATE [Concomitant]
     Route: 048
     Dates: start: 20040101, end: 20040101
  8. MUCOBENE [Concomitant]
     Route: 048
     Dates: start: 20040101
  9. ASPIRIN [Concomitant]
     Route: 048
     Dates: start: 20040101
  10. FRAGMIN [Concomitant]
     Route: 058
     Dates: start: 20040101
  11. MEROPENEM [Concomitant]
     Route: 042
     Dates: start: 20040201, end: 20040221
  12. FLUIMUCIL [Concomitant]
     Route: 042
     Dates: start: 20040201, end: 20040221
  13. ZYVOXID [Concomitant]
     Route: 042
     Dates: start: 20040201, end: 20040221
  14. FORTUM [Concomitant]
     Route: 042
     Dates: start: 20040201, end: 20040221
  15. CANCIDAS [Concomitant]
     Route: 042
     Dates: start: 20040201, end: 20040221
  16. V-PEN [Concomitant]
     Route: 042
     Dates: start: 20040201, end: 20040221
  17. BIKLIN [Concomitant]
     Route: 042
     Dates: start: 20040201, end: 20040221
  18. NEO-SYNEPHRINOL [Concomitant]
     Route: 042
     Dates: start: 20040201, end: 20040221

REACTIONS (2)
  - PULMONARY EMBOLISM [None]
  - SEPSIS [None]
